FAERS Safety Report 13045789 (Version 9)
Quarter: 2017Q2

REPORT INFORMATION
  Report Type: Spontaneous
  Country: US (occurrence: US)
  Receive Date: 20161220
  Receipt Date: 20170420
  Transmission Date: 20170830
  Serious: Yes (Hospitalization)
  Sender: FDA-Public Use
  Company Number: US-009507513-1612USA009380

PATIENT
  Sex: Female
  Weight: 79.37 kg

DRUGS (5)
  1. NEXPLANON [Suspect]
     Active Substance: ETONOGESTREL
     Indication: CONTRACEPTION
     Dosage: 1 DF, UNK
     Route: 059
     Dates: start: 2011
  2. LORAZEPAM. [Concomitant]
     Active Substance: LORAZEPAM
  3. HYDROXYZINE HYDROCHLORIDE. [Concomitant]
     Active Substance: HYDROXYZINE HYDROCHLORIDE
  4. FLUOXETINE [Concomitant]
     Active Substance: FLUOXETINE HYDROCHLORIDE
  5. VITAMIN D [Concomitant]
     Active Substance: CHOLECALCIFEROL

REACTIONS (7)
  - Migration of implanted drug [Not Recovered/Not Resolved]
  - Infertility [Unknown]
  - Complication associated with device [Recovered/Resolved]
  - Incorrect drug administration duration [Not Recovered/Not Resolved]
  - Complication of device removal [Unknown]
  - Ovarian disorder [Unknown]
  - Abdominal pain upper [Unknown]

NARRATIVE: CASE EVENT DATE: 2014
